FAERS Safety Report 7611757-0 (Version None)
Quarter: 2011Q3

REPORT INFORMATION
  Report Type: 
  Country: None (occurrence: None)
  Receive Date: 20110715
  Receipt Date: 20110705
  Transmission Date: 20111222
  Serious: Yes (Death, Hospitalization)
  Sender: FDA-Public Use
  Company Number: RU-SANOFI-AVENTIS-2011SA043821

PATIENT
  Age: 72 Year
  Sex: Male
  Weight: 88 kg

DRUGS (6)
  1. DIGOXIN [Concomitant]
  2. PERINDOPRIL ERBUMINE [Concomitant]
  3. ASPIRIN [Concomitant]
  4. DRONEDARONE HCL [Suspect]
     Indication: ATRIAL FIBRILLATION
     Route: 048
     Dates: start: 20101222, end: 20110113
  5. METOPROLOL TARTRATE [Concomitant]
  6. THIAZIDES [Concomitant]

REACTIONS (3)
  - ISCHAEMIC STROKE [None]
  - MYOCARDIAL INFARCTION [None]
  - CARDIAC DEATH [None]
